FAERS Safety Report 7381311-7 (Version None)
Quarter: 2011Q1

REPORT INFORMATION
  Report Type: 
  Country: None (occurrence: None)
  Receive Date: 20110329
  Receipt Date: 20110316
  Transmission Date: 20110831
  Serious: Yes (Hospitalization)
  Sender: FDA-Public Use
  Company Number: PHHO2010DE13679

PATIENT
  Sex: Male
  Weight: 86 kg

DRUGS (12)
  1. SANDIMMUNE [Concomitant]
     Dosage: 175 MG, BID
     Route: 048
     Dates: start: 20101110, end: 20110216
  2. METHIMAZOLE [Concomitant]
  3. EVEROLIMUS [Suspect]
     Dosage: 4 MG DAILY
     Route: 048
     Dates: start: 20110214
  4. MYFORTIC [Suspect]
     Indication: LIVER TRANSPLANT
     Dosage: 2160 MG, UNK
     Route: 048
     Dates: start: 20100721
  5. ZEFFIX [Concomitant]
  6. IRENAT [Concomitant]
  7. EVEROLIMUS [Suspect]
     Indication: LIVER TRANSPLANT
     Dosage: 16 MG, UNK
     Route: 048
     Dates: start: 20100721
  8. PREDNISOLONE [Concomitant]
  9. VALCYTE [Concomitant]
  10. METOPROLOL SUCCINATE [Concomitant]
  11. UDC [Concomitant]
  12. EVEROLIMUS [Suspect]
     Dosage: 3.75 MG, BID
     Route: 048
     Dates: end: 20101110

REACTIONS (7)
  - IMPAIRED HEALING [None]
  - ACUTE HEPATIC FAILURE [None]
  - HEPATITIS B [None]
  - ASCITES [None]
  - LEUKOPENIA [None]
  - INFECTION [None]
  - LIVER DISORDER [None]
